FAERS Safety Report 25406106 (Version 1)
Quarter: 2025Q2

REPORT INFORMATION
  Report Type: Report from Study
  Country: PH (occurrence: PH)
  Receive Date: 20250606
  Receipt Date: 20250606
  Transmission Date: 20250716
  Serious: Yes (Other)
  Sender: TAKEDA
  Company Number: PH-JNJFOC-20250536169

PATIENT
  Age: 53 Year
  Sex: Female

DRUGS (8)
  1. BORTEZOMIB [Suspect]
     Active Substance: BORTEZOMIB
     Indication: Plasma cell myeloma
     Dosage: UNK UNK, 1/WEEK
  2. DARZALEX [Suspect]
     Active Substance: DARATUMUMAB
     Indication: Plasma cell myeloma
     Dosage: UNK, 1/WEEK
     Dates: start: 20250116, end: 20250522
  3. LENALIDOMIDE [Suspect]
     Active Substance: LENALIDOMIDE
     Indication: Plasma cell myeloma
  4. CYCLOPHOSPHAMIDE [Suspect]
     Active Substance: CYCLOPHOSPHAMIDE
     Indication: Plasma cell myeloma
  5. Transmetil [Concomitant]
     Indication: Product used for unknown indication
  6. ZOLEDRONIC ACID [Concomitant]
     Active Substance: ZOLEDRONIC ACID
     Indication: Bone pain
     Dosage: UNK UNK, MONTHLY
  7. TENOFOVIR [Concomitant]
     Active Substance: TENOFOVIR
     Indication: Hepatitis B
  8. DEXAMETHASONE [Concomitant]
     Active Substance: DEXAMETHASONE
     Indication: Product used for unknown indication

REACTIONS (13)
  - Bone marrow transplant [Unknown]
  - Neuropathy peripheral [Unknown]
  - Nasal congestion [Recovered/Resolved]
  - Neck mass [Unknown]
  - Off label use [Unknown]
  - Contusion [Not Recovered/Not Resolved]
  - Product use issue [Unknown]
  - Hypoaesthesia [Recovered/Resolved]
  - Aspartate aminotransferase increased [Unknown]
  - Dyspnoea [Recovered/Resolved]
  - Hypertension [Unknown]
  - Herpes zoster [Unknown]
  - Pruritus [Not Recovered/Not Resolved]

NARRATIVE: CASE EVENT DATE: 20250116
